FAERS Safety Report 10476915 (Version 1)
Quarter: 2014Q3

REPORT INFORMATION
  Report Type: Report from Study
  Country: ES (occurrence: ES)
  Receive Date: 20140926
  Receipt Date: 20140926
  Transmission Date: 20150326
  Serious: Yes (Life-Threatening, Hospitalization, Other)
  Sender: FDA-Public Use
  Company Number: ES-ABBVIE-14K-144-1286794-00

PATIENT
  Age: 42 Year
  Sex: Male
  Weight: 78 kg

DRUGS (1)
  1. HUMIRA [Suspect]
     Active Substance: ADALIMUMAB
     Indication: PSORIASIS
     Dates: start: 20120507, end: 201401

REACTIONS (1)
  - Astrocytoma, low grade [Not Recovered/Not Resolved]

NARRATIVE: CASE EVENT DATE: 2014
